FAERS Safety Report 17565021 (Version 1)
Quarter: 2020Q1

REPORT INFORMATION
  Report Type: Spontaneous
  Country: US (occurrence: US)
  Receive Date: 20200319
  Receipt Date: 20200319
  Transmission Date: 20200409
  Serious: Yes (Other)
  Sender: FDA-Public Use
  Company Number: None

PATIENT
  Age: 69 Year
  Sex: Female
  Weight: 90 kg

DRUGS (10)
  1. METHYLPREDNISOLONE 4MG TABLETS [Suspect]
     Active Substance: METHYLPREDNISOLONE
     Indication: INFLUENZA
     Dosage: ?          QUANTITY:1 TABLET(S);?
     Route: 048
     Dates: start: 20190617, end: 20190623
  2. LATANOPROST. [Concomitant]
     Active Substance: LATANOPROST
  3. TRIAMTERENE. [Concomitant]
     Active Substance: TRIAMTERENE
  4. 81 MG ASPIRIN [Concomitant]
     Active Substance: ASPIRIN
  5. PANTOPRAZOLE 40MG TABLETS [Suspect]
     Active Substance: PANTOPRAZOLE
  6. FAMOTIDINE. [Concomitant]
     Active Substance: FAMOTIDINE
  7. LEVOTHYROXINE. [Concomitant]
     Active Substance: LEVOTHYROXINE
  8. DORZOLAMIDE [Concomitant]
     Active Substance: DORZOLAMIDE
  9. ONE ADAY VITAMIN FOR WOMEN [Concomitant]
  10. PRAVASTATIN. [Concomitant]
     Active Substance: PRAVASTATIN

REACTIONS (2)
  - Ageusia [None]
  - Anosmia [None]

NARRATIVE: CASE EVENT DATE: 20190617
